FAERS Safety Report 22298492 (Version 1)
Quarter: 2023Q2

REPORT INFORMATION
  Report Type: Spontaneous
  Country: FR (occurrence: FR)
  Receive Date: 20230509
  Receipt Date: 20230509
  Transmission Date: 20230722
  Serious: Yes (Other)
  Sender: FDA-Public Use
  Company Number: FR-PFIZER INC-202200482727

PATIENT
  Age: 46 Year
  Sex: Female

DRUGS (1)
  1. PALBOCICLIB [Suspect]
     Active Substance: PALBOCICLIB
     Indication: Breast cancer female
     Dosage: UNK

REACTIONS (22)
  - Hot flush [Not Recovered/Not Resolved]
  - Fatigue [Recovering/Resolving]
  - Dry skin [Recovered/Resolved]
  - Dizziness [Unknown]
  - Balance disorder [Recovered/Resolved]
  - Rash maculo-papular [Recovered/Resolved]
  - Constipation [Recovered/Resolved]
  - Rash pruritic [Unknown]
  - Gastrooesophageal reflux disease [Recovered/Resolved]
  - Decreased appetite [Unknown]
  - Oedema peripheral [Recovered/Resolved]
  - Vertigo [Recovered/Resolved]
  - Abdominal pain [Recovered/Resolved]
  - Nausea [Recovered/Resolved]
  - Stomatitis [Recovered/Resolved]
  - Diarrhoea [Recovered/Resolved]
  - Palpitations [Recovered/Resolved]
  - Depression [Not Recovered/Not Resolved]
  - Arthralgia [Not Recovered/Not Resolved]
  - Hyperhidrosis [Not Recovered/Not Resolved]
  - Chills [Not Recovered/Not Resolved]
  - Onychomadesis [Not Recovered/Not Resolved]
